FAERS Safety Report 13803259 (Version 1)
Quarter: 2017Q3

REPORT INFORMATION
  Report Type: Spontaneous
  Country: US (occurrence: US)
  Receive Date: 20170728
  Receipt Date: 20170728
  Transmission Date: 20171127
  Serious: No
  Sender: FDA-Public Use
  Company Number: US-ASPEN PHARMA TRADING LIMITED US-AG-2017-005115

PATIENT
  Age: 24 Year
  Sex: Male

DRUGS (1)
  1. BENZATROPINE [Suspect]
     Active Substance: BENZTROPINE
     Indication: CATATONIA
     Dosage: 2 MG, DAILY; AS MONOTHERAPY
     Route: 042

REACTIONS (1)
  - Off label use [Unknown]
